FAERS Safety Report 9450586 (Version 1)
Quarter: 2013Q3

REPORT INFORMATION
  Report Type: Spontaneous
  Country: AT (occurrence: AT)
  Receive Date: 20130809
  Receipt Date: 20130809
  Transmission Date: 20140515
  Serious: Yes (Other)
  Sender: FDA-Public Use
  Company Number: AT-GLAXOSMITHKLINE-B0914287A

PATIENT
  Age: 51 Year
  Sex: Female
  Weight: 104 kg

DRUGS (2)
  1. WELLBUTRIN [Suspect]
     Indication: DEPRESSION
     Dosage: 150MG PER DAY
     Dates: start: 20130115, end: 20130415
  2. CYMBALTA [Suspect]
     Indication: DEPRESSION
     Dosage: 60MG TWICE PER DAY
     Dates: start: 20130115, end: 20130415

REACTIONS (1)
  - Hypertensive crisis [Recovered/Resolved]
